FAERS Safety Report 22377050 (Version 1)
Quarter: 2023Q2

REPORT INFORMATION
  Report Type: Spontaneous
  Country: US (occurrence: US)
  Receive Date: 20230529
  Receipt Date: 20230529
  Transmission Date: 20230722
  Serious: No
  Sender: FDA-Public Use
  Company Number: US-Accord-264628

PATIENT
  Age: 69 Year
  Sex: Male
  Weight: 62.14 kg

DRUGS (3)
  1. ATORVASTATIN [Suspect]
     Active Substance: ATORVASTATIN
     Indication: Blood cholesterol increased
     Dosage: STRENGTH: 10MG, BY MOUTH, DAILY
     Dates: start: 202111
  2. LOSARTAN [Concomitant]
     Active Substance: LOSARTAN
  3. TRIAMTEREN HCT [Concomitant]

REACTIONS (2)
  - Tendon pain [Unknown]
  - Epicondylitis [Unknown]

NARRATIVE: CASE EVENT DATE: 20220201
